FAERS Safety Report 5420250-5 (Version None)
Quarter: 2007Q3

REPORT INFORMATION
  Report Type: 
  Country: None (occurrence: None)
  Receive Date: 20070820
  Receipt Date: 20070808
  Transmission Date: 20080115
  Serious: Yes (Other)
  Sender: FDA-Public Use
  Company Number: AU-GILEAD-2007-0012998

PATIENT

DRUGS (1)
  1. TRUVADA [Suspect]
     Indication: HIV INFECTION

REACTIONS (3)
  - BLOOD POTASSIUM DECREASED [None]
  - FANCONI SYNDROME ACQUIRED [None]
  - MYCOBACTERIAL INFECTION [None]
